FAERS Safety Report 11145290 (Version 2)
Quarter: 2015Q2

REPORT INFORMATION
  Report Type: Spontaneous
  Country: IT (occurrence: IT)
  Receive Date: 20150528
  Receipt Date: 20150603
  Transmission Date: 20150821
  Serious: Yes (Death)
  Sender: FDA-Public Use
  Company Number: IT-TEVA-565445ACC

PATIENT
  Age: 27 Year
  Sex: Male

DRUGS (2)
  1. DIAZEPAM. [Suspect]
     Active Substance: DIAZEPAM
     Indication: PSYCHOMOTOR HYPERACTIVITY
     Dosage: 6 MILLIGRAM DAILY; 6 MG DAILY
     Route: 048
     Dates: start: 20080113, end: 20080122
  2. RISPERDAL [Suspect]
     Active Substance: RISPERIDONE
     Indication: DELUSIONAL DISORDER, PERSECUTORY TYPE
     Dosage: 6 MILLIGRAM DAILY; 6 MG DAILY, ORAL DROPS, SOLUTION
     Route: 048
     Dates: start: 20080113, end: 20080122

REACTIONS (1)
  - Completed suicide [Fatal]

NARRATIVE: CASE EVENT DATE: 20080122
